FAERS Safety Report 11322549 (Version 2)
Quarter: 2015Q3

REPORT INFORMATION
  Report Type: Spontaneous
  Country: BR (occurrence: BR)
  Receive Date: 20150730
  Receipt Date: 20150812
  Transmission Date: 20151125
  Serious: Yes (Hospitalization, Other)
  Sender: FDA-Public Use
  Company Number: BR-PFIZER INC-2012053893

PATIENT
  Age: 60 Year
  Sex: Female
  Weight: 64 kg

DRUGS (7)
  1. OMEPRAZOLE. [Concomitant]
     Active Substance: OMEPRAZOLE
     Dosage: 20 MG, 1X/DAY
     Route: 048
  2. METFORMIN [Concomitant]
     Active Substance: METFORMIN HYDROCHLORIDE
     Indication: DIABETES MELLITUS
     Dosage: 500 MG, 3X/DAY
  3. ATENOLOL. [Concomitant]
     Active Substance: ATENOLOL
     Indication: HYPERTENSION
     Dosage: 50 MG, 2X/DAY
     Route: 048
  4. ALUMINIUM HYDROXIDE [Concomitant]
     Active Substance: ALUMINUM HYDROXIDE
     Indication: ABDOMINAL DISCOMFORT
  5. SUTENT [Suspect]
     Active Substance: SUNITINIB MALATE
     Dosage: 25 MG, CONTINUOUS
     Route: 048
  6. LOSARTAN. [Concomitant]
     Active Substance: LOSARTAN
     Dosage: 1 DF, 1X/DAY
  7. SUTENT [Suspect]
     Active Substance: SUNITINIB MALATE
     Indication: GASTROINTESTINAL STROMAL TUMOUR
     Dosage: 25 MG, ALTERNATE DAY, CYCLE 4 PER 2
     Route: 048
     Dates: start: 20120224

REACTIONS (24)
  - Diabetes mellitus [Unknown]
  - Mouth injury [Not Recovered/Not Resolved]
  - Somnolence [Unknown]
  - Dysphagia [Not Recovered/Not Resolved]
  - Nail disorder [Not Recovered/Not Resolved]
  - Noninfective gingivitis [Unknown]
  - Muscle spasms [Unknown]
  - Asthenia [Not Recovered/Not Resolved]
  - Headache [Not Recovered/Not Resolved]
  - Wound [Not Recovered/Not Resolved]
  - Fatigue [Not Recovered/Not Resolved]
  - Oral discomfort [Not Recovered/Not Resolved]
  - Ageusia [Not Recovered/Not Resolved]
  - Dysstasia [Not Recovered/Not Resolved]
  - Blister [Unknown]
  - Gingival hyperplasia [Unknown]
  - Nasal discomfort [Not Recovered/Not Resolved]
  - Dry skin [Unknown]
  - Hypertension [Not Recovered/Not Resolved]
  - Sluggishness [Not Recovered/Not Resolved]
  - Alopecia [Unknown]
  - Onychomycosis [Not Recovered/Not Resolved]
  - Weight increased [Unknown]
  - Secretion discharge [Unknown]

NARRATIVE: CASE EVENT DATE: 2012
